FAERS Safety Report 4732566-6 (Version None)
Quarter: 2005Q3

REPORT INFORMATION
  Report Type: 
  Country: None (occurrence: None)
  Receive Date: 20050801
  Receipt Date: 20050718
  Transmission Date: 20060218
  Serious: Yes (Other)
  Sender: FDA-Public Use
  Company Number: 2005074259

PATIENT
  Sex: Female

DRUGS (1)
  1. DETROL LA [Suspect]
     Indication: ILL-DEFINED DISORDER

REACTIONS (6)
  - BLINDNESS TRANSIENT [None]
  - CATARACT OPERATION [None]
  - ECONOMIC PROBLEM [None]
  - FEELING ABNORMAL [None]
  - OPEN ANGLE GLAUCOMA [None]
  - SOMNOLENCE [None]
